FAERS Safety Report 25969926 (Version 2)
Quarter: 2025Q4

REPORT INFORMATION
  Report Type: Spontaneous
  Country: US (occurrence: None)
  Receive Date: 20251028
  Receipt Date: 20251217
  Transmission Date: 20260118
  Serious: No
  Sender: UCB
  Company Number: US-UCBSA-2025040139

PATIENT
  Age: 26 Year

DRUGS (2)
  1. BIMZELX [Suspect]
     Active Substance: BIMEKIZUMAB-BKZX
     Indication: Hidradenitis
     Dosage: 320 MILLIGRAM, EV 2 WEEKS(QOW)
  2. BIMZELX [Suspect]
     Active Substance: BIMEKIZUMAB-BKZX
     Dosage: 320 MILLIGRAM, EV 2 WEEKS(QOW)

REACTIONS (5)
  - Bacterial infection [Unknown]
  - Inflammation [Unknown]
  - Cyst [Unknown]
  - Device malfunction [Unknown]
  - Needle issue [Unknown]
